FAERS Safety Report 8575285-0 (Version None)
Quarter: 2012Q3

REPORT INFORMATION
  Report Type: 
  Country: None (occurrence: None)
  Receive Date: 20120807
  Receipt Date: 20120717
  Transmission Date: 20120928
  Serious: No
  Sender: FDA-Public Use
  Company Number: US-009507513-1207USA006283

PATIENT

DRUGS (4)
  1. RIBASPHERE [Concomitant]
     Dosage: 3 DF, QD
  2. VICTRELIS [Suspect]
     Indication: HEPATITIS C
     Dosage: 800 MG, TID
     Route: 048
     Dates: start: 20120419
  3. PEGASYS [Concomitant]
  4. RIBASPHERE [Concomitant]
     Dosage: 6 DF, QD

REACTIONS (3)
  - DIZZINESS [None]
  - NEUTROPENIA [None]
  - ANAEMIA [None]
